FAERS Safety Report 6109326-7 (Version None)
Quarter: 2009Q1

REPORT INFORMATION
  Report Type: 
  Country: None (occurrence: None)
  Receive Date: 20090309
  Receipt Date: 20090309
  Transmission Date: 20090719
  Serious: No
  Sender: FDA-Public Use
  Company Number: None

PATIENT
  Age: 75 Year
  Sex: Male
  Weight: 83.5 kg

DRUGS (2)
  1. ZIPRASIDONE HCL [Suspect]
     Indication: AGITATION
     Dosage: 40 MG BID PO
     Route: 048
     Dates: start: 20090220, end: 20090304
  2. ZIPRASIDONE HCL [Suspect]
     Indication: PSYCHOTIC DISORDER
     Dosage: 40 MG BID PO
     Route: 048
     Dates: start: 20090220, end: 20090304

REACTIONS (1)
  - ELECTROCARDIOGRAM QT PROLONGED [None]
